FAERS Safety Report 10005905 (Version 3)
Quarter: 2015Q1

REPORT INFORMATION
  Report Type: Spontaneous
  Country: US (occurrence: US)
  Receive Date: 20140313
  Receipt Date: 20150325
  Transmission Date: 20150720
  Serious: Yes (Hospitalization, Other)
  Sender: FDA-Public Use
  Company Number: US-BAYER-2014-035392

PATIENT
  Age: 25 Year
  Sex: Female
  Weight: 56.69 kg

DRUGS (3)
  1. SYNTHROID [Concomitant]
     Active Substance: LEVOTHYROXINE SODIUM
     Indication: HYPOTHYROIDISM
     Dosage: UNK
     Dates: start: 2005
  2. YAZ [Suspect]
     Active Substance: DROSPIRENONE\ETHINYL ESTRADIOL
     Dosage: UNK
     Dates: start: 2005, end: 2010
  3. CLARAVIS [Concomitant]
     Active Substance: ISOTRETINOIN
     Dosage: 40 MG, BID
     Route: 048
     Dates: start: 20091028, end: 20100103

REACTIONS (8)
  - Anxiety [None]
  - Deep vein thrombosis [None]
  - Thrombosis [None]
  - Pain [None]
  - Abdominal pain [None]
  - Emotional distress [None]
  - General physical health deterioration [None]
  - Injury [None]

NARRATIVE: CASE EVENT DATE: 20100122
